FAERS Safety Report 6755852-7 (Version None)
Quarter: 2010Q2

REPORT INFORMATION
  Report Type: 
  Country: None (occurrence: None)
  Receive Date: 20100604
  Receipt Date: 20100524
  Transmission Date: 20101027
  Serious: Yes (Other)
  Sender: FDA-Public Use
  Company Number: ES-JNJFOC-20100509091

PATIENT
  Age: 65 Year
  Sex: Female

DRUGS (5)
  1. TAVANIC [Suspect]
     Indication: RESPIRATORY TRACT INFECTION
     Route: 048
  2. SULFAMETHOXAZOLE [Suspect]
     Indication: URINARY TRACT INFECTION
     Route: 065
  3. DOXYCYCLINE [Suspect]
     Indication: RESPIRATORY TRACT INFECTION
     Route: 048
  4. SERTRALINE HCL [Suspect]
     Indication: AFFECTIVE DISORDER
  5. DOMPERIDONE [Concomitant]
     Route: 065

REACTIONS (4)
  - CHOLESTASIS [None]
  - CYTOLYTIC HEPATITIS [None]
  - DRUG INEFFECTIVE [None]
  - HEPATITIS TOXIC [None]
